FAERS Safety Report 21750972 (Version 1)
Quarter: 2022Q4

REPORT INFORMATION
  Report Type: Report from Study
  Country: US (occurrence: US)
  Receive Date: 20221219
  Receipt Date: 20221219
  Transmission Date: 20230112
  Serious: Yes (Hospitalization)
  Sender: FDA-Public Use
  Company Number: US-ABBVIE-4242060

PATIENT
  Sex: Male

DRUGS (2)
  1. IMBRUVICA [Suspect]
     Active Substance: IBRUTINIB
     Indication: Follicular lymphoma
     Route: 048
     Dates: start: 20221207, end: 20221212
  2. IMBRUVICA [Suspect]
     Active Substance: IBRUTINIB
     Indication: Follicular lymphoma
     Route: 048
     Dates: start: 202211, end: 2022

REACTIONS (7)
  - Infection [Unknown]
  - White blood cell count decreased [Unknown]
  - Unevaluable event [Unknown]
  - Pain in extremity [Unknown]
  - Anger [Unknown]
  - Off label use [Unknown]
  - Nervous system disorder [Unknown]
